FAERS Safety Report 8369608 (Version 2)
Quarter: 2013Q1

REPORT INFORMATION
  Report Type: Report from Study
  Country: US (occurrence: US)
  Receive Date: 20120128
  Receipt Date: 20130129
  Transmission Date: 20140127
  Serious: No
  Sender: FDA-Public Use
  Company Number: US-ABBOTT-11P-163-0734964-00

PATIENT
  Sex: Male

DRUGS (9)
  1. HUMIRA 40 MG/0.8 ML PEN [Suspect]
     Indication: PSORIATIC ARTHROPATHY
     Dates: start: 2008
  2. HUMIRA 40 MG/0.8 ML PEN [Suspect]
  3. UNKNOWN HYPERTENSION MEDICATION [Concomitant]
     Indication: PRODUCT USED FOR UNKNOWN INDICATION
  4. TRICOR [Concomitant]
     Indication: PRODUCT USED FOR UNKNOWN INDICATION
  5. LEVOTHYROXINE [Concomitant]
     Indication: PRODUCT USED FOR UNKNOWN INDICATION
  6. LISINOPRIL [Concomitant]
     Indication: HYPERTENSION
  7. METOPROLOL [Concomitant]
     Indication: HYPERTENSION
  8. VITAMIN B12 [Concomitant]
     Indication: PRODUCT USED FOR UNKNOWN INDICATION
     Route: 050
  9. VITAMIN B12 [Concomitant]
     Route: 048

REACTIONS (9)
  - Incorrect dose administered [Unknown]
  - Psoriasis [Not Recovered/Not Resolved]
  - Psoriasis [Not Recovered/Not Resolved]
  - Arthralgia [Not Recovered/Not Resolved]
  - Arthralgia [Not Recovered/Not Resolved]
  - Lethargy [Unknown]
  - Pain [Unknown]
  - Vitamin D abnormal [Unknown]
  - Injection site mass [Unknown]
